FAERS Safety Report 17305201 (Version 10)
Quarter: 2021Q1

REPORT INFORMATION
  Report Type: Spontaneous
  Country: DE (occurrence: DE)
  Receive Date: 20200123
  Receipt Date: 20210104
  Transmission Date: 20210419
  Serious: Yes (Life-Threatening, Hospitalization, Other)
  Sender: FDA-Public Use
  Company Number: DE-BRISTOL-MYERS SQUIBB COMPANY-BMS-2020-004835

PATIENT
  Age: 80 Year
  Sex: Male
  Weight: 95 kg

DRUGS (26)
  1. POMALIDOMIDE [Suspect]
     Active Substance: POMALIDOMIDE
     Indication: MYELOFIBROSIS
     Dosage: 0.5 MILLIGRAM, QD
     Route: 048
     Dates: start: 20191127, end: 20191223
  2. RUXOLITINIB [Suspect]
     Active Substance: RUXOLITINIB
     Dosage: UNK
     Route: 048
     Dates: start: 20200709
  3. KALIUM [POTASSIUM] [Concomitant]
     Active Substance: POTASSIUM
     Indication: HYPOKALAEMIA
     Dosage: UNK
     Route: 065
  4. POMALIDOMIDE [Suspect]
     Active Substance: POMALIDOMIDE
     Dosage: UNK MILLIGRAM
     Route: 048
     Dates: start: 20200709
  5. TERABLOCK [Concomitant]
     Indication: BENIGN PROSTATIC HYPERPLASIA
     Dosage: 2 MILLIGRAM
     Route: 065
     Dates: start: 20170216, end: 20200106
  6. RUXOLITINIB [Suspect]
     Active Substance: RUXOLITINIB
     Dosage: 15 MILLIGRAM, BID
     Route: 048
     Dates: start: 20191224, end: 20200107
  7. ELIQUIS [Suspect]
     Active Substance: APIXABAN
     Dosage: ^2MG; 2.5MG^
     Route: 048
     Dates: end: 20200608
  8. RUXOLITINIB [Suspect]
     Active Substance: RUXOLITINIB
     Dosage: 2 UNITS NOT SPECIFIED 1 DAY
     Route: 048
     Dates: start: 20200114, end: 20200120
  9. RUXOLITINIB [Suspect]
     Active Substance: RUXOLITINIB
     Dosage: 25 MILLIGRAM, BID
     Route: 048
     Dates: start: 20200313, end: 20200623
  10. TAMSULOSIN [Concomitant]
     Active Substance: TAMSULOSIN
     Indication: PRODUCT USED FOR UNKNOWN INDICATION
     Dosage: UNK
     Route: 065
     Dates: start: 2020
  11. ELIQUIS [Suspect]
     Active Substance: APIXABAN
     Indication: PROPHYLAXIS
     Dosage: 5 MILLIGRAM, BID
     Route: 065
     Dates: start: 20181113, end: 20200106
  12. POMALIDOMIDE [Suspect]
     Active Substance: POMALIDOMIDE
     Dosage: 0.5 MILLIGRAM, QD
     Route: 048
     Dates: start: 20191224, end: 20200107
  13. RUXOLITINIB [Suspect]
     Active Substance: RUXOLITINIB
     Dosage: 10 MILLIGRAM, BID
     Route: 048
     Dates: start: 20191127, end: 20200929
  14. BELOC ZOK MITE [Concomitant]
     Active Substance: METOPROLOL SUCCINATE
     Indication: HYPERTENSION
     Dosage: 47.5 MILLIGRAM
     Route: 065
     Dates: start: 20200107
  15. ELIQUIS [Suspect]
     Active Substance: APIXABAN
     Dosage: 5 MILLIGRAM, BID
     Route: 065
     Dates: start: 20181113, end: 20200106
  16. POMALIDOMIDE [Suspect]
     Active Substance: POMALIDOMIDE
     Dosage: 2 MILLIGRAM, QD
     Route: 048
     Dates: start: 20200512, end: 20200623
  17. TORASEMIDE [Concomitant]
     Active Substance: TORSEMIDE
     Indication: HYPERTENSION
     Dosage: 10 MILLIGRAM
     Route: 065
     Dates: start: 201611
  18. RAMIPRIL. [Concomitant]
     Active Substance: RAMIPRIL
     Indication: PRODUCT USED FOR UNKNOWN INDICATION
     Dosage: UNK
     Route: 065
     Dates: start: 20170721
  19. ELIQUIS [Suspect]
     Active Substance: APIXABAN
     Indication: HYPERTENSION
     Dosage: 2.5 MILLIGRAM, BID
     Route: 048
     Dates: start: 20200215
  20. ELIQUIS [Suspect]
     Active Substance: APIXABAN
     Dosage: 5 MILLIGRAM, BID
     Route: 048
     Dates: end: 20201002
  21. POMALIDOMIDE [Suspect]
     Active Substance: POMALIDOMIDE
     Dosage: 0.5 MILLIGRAM, QD
     Route: 048
     Dates: start: 20191127, end: 20200929
  22. RUXOLITINIB [Suspect]
     Active Substance: RUXOLITINIB
     Indication: MYELOFIBROSIS
     Dosage: 20 MILLIGRAM, BID
     Route: 048
     Dates: start: 20191127, end: 20191223
  23. TOTAM [CEFOTAXIME] [Concomitant]
     Indication: PRODUCT USED FOR UNKNOWN INDICATION
     Dosage: UNK
     Route: 065
  24. TOREM [TORASEMIDE] [Concomitant]
     Active Substance: TORSEMIDE
     Indication: PRODUCT USED FOR UNKNOWN INDICATION
     Dosage: UNK
     Route: 065
  25. POMALIDOMIDE [Suspect]
     Active Substance: POMALIDOMIDE
     Dosage: UNK
     Route: 048
     Dates: start: 20200114, end: 20200120
  26. RAMILICH [Concomitant]
     Active Substance: RAMIPRIL
     Indication: HYPERTENSION
     Dosage: 2.5 MILLIGRAM
     Route: 065
     Dates: start: 20170721

REACTIONS (9)
  - Gastrointestinal haemorrhage [Recovered/Resolved]
  - Intentional product use issue [Unknown]
  - Haematoma [Unknown]
  - Infection [Recovered/Resolved]
  - Hypokalaemia [Unknown]
  - Syncope [Recovered/Resolved]
  - Pneumonia [Unknown]
  - Atrial fibrillation [Unknown]
  - Epistaxis [Unknown]

NARRATIVE: CASE EVENT DATE: 20200107
